FAERS Safety Report 13272637 (Version 1)
Quarter: 2017Q1

REPORT INFORMATION
  Report Type: Spontaneous
  Country: US (occurrence: US)
  Receive Date: 20170225
  Receipt Date: 20170225
  Transmission Date: 20170428
  Serious: Yes (Hospitalization, Disabling)
  Sender: FDA-Public Use
  Company Number: None

PATIENT
  Age: 69 Year
  Sex: Female
  Weight: 103.5 kg

DRUGS (9)
  1. LAXATIVES [Concomitant]
     Active Substance: UNSPECIFIED INGREDIENT
  2. ONE A DAY VITAMINS AND MINERALS [Concomitant]
  3. YOGURT [Concomitant]
  4. ASPRIN [Concomitant]
     Active Substance: ASPIRIN
  5. TUMS [Concomitant]
     Active Substance: CALCIUM CARBONATE
  6. SPIRONOLACTONE. [Concomitant]
     Active Substance: SPIRONOLACTONE
  7. HYDROCHLOROTHIAMIDE [Concomitant]
  8. NITROSTAT [Concomitant]
     Active Substance: NITROGLYCERIN
  9. ABILIFY [Suspect]
     Active Substance: ARIPIPRAZOLE
     Indication: SCHIZOPHRENIA
     Dosage: ?          QUANTITY:30 TABLET(S);?
     Route: 048

REACTIONS (6)
  - Constipation [None]
  - Pancreatic disorder [None]
  - Thyroid disorder [None]
  - Blood pressure abnormal [None]
  - Muscle spasms [None]
  - Hormone level abnormal [None]

NARRATIVE: CASE EVENT DATE: 20170225
